FAERS Safety Report 14658612 (Version 6)
Quarter: 2018Q3

REPORT INFORMATION
  Report Type: Spontaneous
  Country: US (occurrence: US)
  Receive Date: 20180320
  Receipt Date: 20180828
  Transmission Date: 20181010
  Serious: Yes (Other)
  Sender: FDA-Public Use
  Company Number: US-BRISTOL-MYERS SQUIBB COMPANY-BMS-2018-025854

PATIENT
  Sex: Female

DRUGS (2)
  1. ORENCIA [Suspect]
     Active Substance: ABATACEPT
     Indication: RHEUMATOID ARTHRITIS
     Dosage: 125 MG/ML, QWK
     Route: 058
     Dates: start: 201712
  2. ORENCIA [Suspect]
     Active Substance: ABATACEPT
     Indication: ARTHRALGIA
     Dosage: 125 MG, UNK
     Route: 058
     Dates: start: 201805

REACTIONS (11)
  - Drug ineffective [Unknown]
  - Fall [Unknown]
  - Peripheral swelling [Unknown]
  - Malaise [Unknown]
  - Arthralgia [Unknown]
  - Cellulitis [Unknown]
  - Limb injury [Unknown]
  - Contusion [Unknown]
  - Erythema [Unknown]
  - Chondrocalcinosis pyrophosphate [Unknown]
  - Joint swelling [Unknown]
